FAERS Safety Report 22622252 (Version 1)
Quarter: 2023Q2

REPORT INFORMATION
  Report Type: Spontaneous
  Country: ZA (occurrence: ZA)
  Receive Date: 20230620
  Receipt Date: 20230620
  Transmission Date: 20230722
  Serious: Yes (Other)
  Sender: FDA-Public Use
  Company Number: ZA-PFIZER INC-2020470251

PATIENT
  Age: 68 Year
  Sex: Male

DRUGS (2)
  1. ENBREL [Suspect]
     Active Substance: ETANERCEPT
     Indication: Ankylosing spondylitis
     Dosage: 25 MG
     Route: 058
     Dates: start: 20080407
  2. ENBREL [Suspect]
     Active Substance: ETANERCEPT
     Dosage: 50 MG ONCE A WEEK
     Route: 065
     Dates: start: 20220829

REACTIONS (8)
  - Hip arthroplasty [Unknown]
  - Neck pain [Unknown]
  - Spinal pain [Unknown]
  - Fatigue [Unknown]
  - Osteoarthritis [Unknown]
  - Intentional dose omission [Unknown]
  - Gout [Unknown]
  - Hypertension [Unknown]

NARRATIVE: CASE EVENT DATE: 20080901
